FAERS Safety Report 16758234 (Version 1)
Quarter: 2019Q3

REPORT INFORMATION
  Report Type: Spontaneous
  Country: US (occurrence: US)
  Receive Date: 20190830
  Receipt Date: 20190830
  Transmission Date: 20191005
  Serious: No
  Sender: FDA-Public Use
  Company Number: US-ASTRAZENECA-2019SE90522

PATIENT
  Age: 900 Month
  Sex: Male

DRUGS (1)
  1. BYDUREON BCISE [Suspect]
     Active Substance: EXENATIDE
     Indication: GLUCOSE TOLERANCE IMPAIRED
     Dosage: 2.0MG UNKNOWN
     Route: 058
     Dates: start: 201809

REACTIONS (3)
  - Diarrhoea [Unknown]
  - Vomiting [Unknown]
  - Device issue [Unknown]

NARRATIVE: CASE EVENT DATE: 201906
